FAERS Safety Report 12484389 (Version 3)
Quarter: 2016Q3

REPORT INFORMATION
  Report Type: Spontaneous
  Country: US (occurrence: US)
  Receive Date: 20160621
  Receipt Date: 20160817
  Transmission Date: 20161109
  Serious: Yes (Other)
  Sender: FDA-Public Use
  Company Number: US-ASTELLAS-2016US023503

PATIENT
  Sex: Male

DRUGS (3)
  1. TARCEVA [Suspect]
     Active Substance: ERLOTINIB HYDROCHLORIDE
     Indication: LUNG NEOPLASM MALIGNANT
     Route: 048
     Dates: start: 20150211
  2. LUPRON DEPOT [Concomitant]
     Active Substance: LEUPROLIDE ACETATE
     Indication: PRODUCT USED FOR UNKNOWN INDICATION
     Dosage: UNK UNK, UNKNOWN FREQ.
     Route: 065
  3. TARCEVA [Suspect]
     Active Substance: ERLOTINIB HYDROCHLORIDE
     Route: 048
     Dates: start: 20150212

REACTIONS (25)
  - Onychoclasis [Unknown]
  - Pruritus [Unknown]
  - Dysphonia [Unknown]
  - Dyspepsia [Unknown]
  - Dry skin [Unknown]
  - Skin ulcer [Unknown]
  - Visual impairment [Unknown]
  - Alopecia [Unknown]
  - Skin fissures [Unknown]
  - Oropharyngeal pain [Unknown]
  - Nail discolouration [Unknown]
  - Cough [Unknown]
  - Dyspnoea [Unknown]
  - Hepatic neoplasm [Unknown]
  - Back pain [Unknown]
  - Infection [Unknown]
  - Bone pain [Unknown]
  - Dry eye [Unknown]
  - Rash [Unknown]
  - Myalgia [Unknown]
  - Flushing [Unknown]
  - Fatigue [Unknown]
  - Acne [Unknown]
  - Vision blurred [Unknown]
  - Asthenia [Not Recovered/Not Resolved]
